FAERS Safety Report 9450613 (Version 1)
Quarter: 2013Q3

REPORT INFORMATION
  Report Type: Spontaneous
  Country: TR (occurrence: TR)
  Receive Date: 20130809
  Receipt Date: 20130809
  Transmission Date: 20140515
  Serious: Yes (Hospitalization, Other)
  Sender: FDA-Public Use
  Company Number: TR-009507513-1308TUR003812

PATIENT
  Age: 34 Year
  Sex: Female

DRUGS (4)
  1. FOLLITROPIN BETA [Suspect]
     Indication: OVULATION INDUCTION
     Dosage: 150 IU, QD
     Route: 065
  2. FOLLITROPIN BETA [Suspect]
     Indication: INFERTILITY
  3. CETRORELIX [Suspect]
     Dosage: UNK
  4. GONADOTROPIN, CHORIONIC [Suspect]
     Dosage: UNK

REACTIONS (4)
  - Nephrotic syndrome [Not Recovered/Not Resolved]
  - Ovarian hyperstimulation syndrome [Not Recovered/Not Resolved]
  - Paracentesis [Unknown]
  - Chest tube insertion [Unknown]
